FAERS Safety Report 18341006 (Version 2)
Quarter: 2021Q4

REPORT INFORMATION
  Report Type: Report from Study
  Country: US (occurrence: US)
  Receive Date: 20201003
  Receipt Date: 20211022
  Transmission Date: 20220303
  Serious: Yes (Death)
  Sender: FDA-Public Use
  Company Number: US-ACCORD-203909

PATIENT
  Age: 64 Year
  Sex: Female

DRUGS (1)
  1. CLOZAPINE [Suspect]
     Active Substance: CLOZAPINE
     Indication: Product used for unknown indication
     Route: 048

REACTIONS (2)
  - Death [Fatal]
  - Neutrophilia [Recovered/Resolved]

NARRATIVE: CASE EVENT DATE: 20200615
